FAERS Safety Report 7229757-1 (Version None)
Quarter: 2011Q1

REPORT INFORMATION
  Report Type: 
  Country: None (occurrence: None)
  Receive Date: 20110117
  Receipt Date: 20110111
  Transmission Date: 20110831
  Serious: Yes (Other)
  Sender: FDA-Public Use
  Company Number: GB-PFIZER INC-2011007494

PATIENT
  Age: 29 Year
  Sex: Female
  Weight: 86 kg

DRUGS (1)
  1. MEDROXYPROGESTERONE ACETATE [Suspect]
     Dosage: 150 MG, UNK
     Route: 030
     Dates: start: 20100324

REACTIONS (5)
  - CHEST DISCOMFORT [None]
  - PRURITUS [None]
  - RASH GENERALISED [None]
  - DYSPNOEA [None]
  - TREMOR [None]
